FAERS Safety Report 5928213-8 (Version None)
Quarter: 2008Q4

REPORT INFORMATION
  Report Type: 
  Country: None (occurrence: None)
  Receive Date: 20081023
  Receipt Date: 20081013
  Transmission Date: 20090506
  Serious: Yes (Hospitalization)
  Sender: FDA-Public Use
  Company Number: FR-JNJFOC-20081005059

PATIENT
  Sex: Female

DRUGS (7)
  1. TOPALGIC [Suspect]
     Indication: PAIN
     Route: 048
  2. BUSULFAN [Suspect]
     Route: 042
  3. BUSULFAN [Suspect]
     Indication: CENTRAL NERVOUS SYSTEM LYMPHOMA
     Route: 042
  4. THIOTEPA [Suspect]
     Indication: CENTRAL NERVOUS SYSTEM LYMPHOMA
     Route: 042
  5. ZOPHREN [Suspect]
     Indication: ANTIEMETIC SUPPORTIVE CARE
     Route: 042
  6. RIVOTRIL [Suspect]
     Indication: DRUG USE FOR UNKNOWN INDICATION
     Route: 042
  7. KYTRIL [Concomitant]

REACTIONS (1)
  - DERMATITIS BULLOUS [None]
